FAERS Safety Report 6846905-3 (Version None)
Quarter: 2010Q3

REPORT INFORMATION
  Report Type: 
  Country: None (occurrence: None)
  Receive Date: 20100715
  Receipt Date: 20090916
  Transmission Date: 20110219
  Serious: No
  Sender: FDA-Public Use
  Company Number: US-PFIZER INC-2007080647

PATIENT
  Sex: Female
  Weight: 108.84 kg

DRUGS (11)
  1. CHANTIX [Suspect]
     Indication: SMOKING CESSATION THERAPY
     Dates: start: 20070101
  2. NICOTROL [Suspect]
     Indication: SMOKING CESSATION THERAPY
     Dosage: UNK
  3. PROTONIX [Concomitant]
     Indication: GASTRIC DISORDER
  4. FUROSEMIDE [Concomitant]
  5. ZYRTEC [Concomitant]
  6. PROCATEROL HCL [Concomitant]
  7. TRAZODONE HYDROCHLORIDE [Concomitant]
  8. LITHIUM [Concomitant]
  9. LEVONORGESTREL [Concomitant]
  10. ATENOLOL [Concomitant]
     Dosage: UNK
  11. SALBUTAMOL [Concomitant]
     Dosage: UNK

REACTIONS (8)
  - ABNORMAL BEHAVIOUR [None]
  - CONSTIPATION [None]
  - DRUG INEFFECTIVE [None]
  - FEELING COLD [None]
  - FLATULENCE [None]
  - MUSCULAR WEAKNESS [None]
  - MYALGIA [None]
  - PAIN [None]
